FAERS Safety Report 16080558 (Version 1)
Quarter: 2019Q1

REPORT INFORMATION
  Report Type: Spontaneous
  Country: CN (occurrence: CN)
  Receive Date: 20190315
  Receipt Date: 20190315
  Transmission Date: 20190418
  Serious: Yes (Disabling)
  Sender: FDA-Public Use
  Company Number: CN-BAXTER-2019BAX004947

PATIENT
  Age: 84 Year
  Sex: Male
  Weight: 69.1 kg

DRUGS (16)
  1. METRONIDAZOLE AND SODIUM CHLORIDE INJECTION [Suspect]
     Active Substance: METRONIDAZOLE\SODIUM CHLORIDE
     Indication: CHOLECYSTITIS
     Route: 041
     Dates: start: 20190216, end: 20190219
  2. NISONG [Suspect]
     Active Substance: KETOROLAC TROMETHAMINE
     Indication: ANALGESIC THERAPY
  3. AZTREONAM. [Suspect]
     Active Substance: AZTREONAM
     Indication: ANTI-INFECTIVE THERAPY
  4. NISONG [Suspect]
     Active Substance: KETOROLAC TROMETHAMINE
     Indication: CHOLELITHIASIS
  5. AZTREONAM. [Suspect]
     Active Substance: AZTREONAM
     Indication: CHOLECYSTITIS
     Route: 041
     Dates: start: 20190211, end: 20190220
  6. NISONG [Suspect]
     Active Substance: KETOROLAC TROMETHAMINE
     Indication: ANTIINFLAMMATORY THERAPY
  7. METRONIDAZOLE AND SODIUM CHLORIDE INJECTION [Suspect]
     Active Substance: METRONIDAZOLE\SODIUM CHLORIDE
     Indication: CHOLELITHIASIS
  8. NISONG [Suspect]
     Active Substance: KETOROLAC TROMETHAMINE
     Indication: CHOLECYSTITIS
     Route: 041
     Dates: start: 20190216, end: 20190220
  9. TIANQINGGANMEI [Suspect]
     Active Substance: MAGNESIUM ISOGLYCYRRHIZINATE
     Indication: CHOLECYSTITIS
     Route: 041
     Dates: start: 20190211, end: 20190220
  10. TIANQINGGANMEI [Suspect]
     Active Substance: MAGNESIUM ISOGLYCYRRHIZINATE
     Indication: CHOLELITHIASIS
  11. TIANQINGGANMEI [Suspect]
     Active Substance: MAGNESIUM ISOGLYCYRRHIZINATE
     Indication: SPUTUM INCREASED
  12. METRONIDAZOLE AND SODIUM CHLORIDE INJECTION [Suspect]
     Active Substance: METRONIDAZOLE\SODIUM CHLORIDE
     Indication: ANTI-INFECTIVE THERAPY
  13. AZTREONAM. [Suspect]
     Active Substance: AZTREONAM
     Indication: CHOLELITHIASIS
  14. TIANQINGGANMEI [Suspect]
     Active Substance: MAGNESIUM ISOGLYCYRRHIZINATE
     Indication: PROPHYLAXIS
  15. TIANQINGGANMEI [Suspect]
     Active Substance: MAGNESIUM ISOGLYCYRRHIZINATE
     Indication: PROPHYLAXIS
  16. TIANQINGGANMEI [Suspect]
     Active Substance: MAGNESIUM ISOGLYCYRRHIZINATE
     Indication: ASTHMA

REACTIONS (1)
  - Transaminases increased [Unknown]

NARRATIVE: CASE EVENT DATE: 20190217
